FAERS Safety Report 5389701-9 (Version None)
Quarter: 2007Q3

REPORT INFORMATION
  Report Type: 
  Country: None (occurrence: None)
  Receive Date: 20070713
  Receipt Date: 20070705
  Transmission Date: 20080115
  Serious: Yes (Hospitalization)
  Sender: FDA-Public Use
  Company Number: 2007BI014249

PATIENT
  Age: 29 Year
  Sex: Female

DRUGS (6)
  1. AVONEX [Suspect]
     Indication: MULTIPLE SCLEROSIS
     Dosage: 30 UG; QW; IM
     Route: 030
     Dates: start: 20031101
  2. IBUPROFEN [Concomitant]
  3. GABAPENTIN [Concomitant]
  4. BACLOFEN [Concomitant]
  5. CALCIMAGON D3 [Concomitant]
  6. LEVOTHYROXINE SODIUM [Concomitant]

REACTIONS (3)
  - ABASIA [None]
  - DRUG INTERACTION [None]
  - FALL [None]
